FAERS Safety Report 9697462 (Version 3)
Quarter: 2013Q4

REPORT INFORMATION
  Report Type: Report from Study
  Country: VE (occurrence: VE)
  Receive Date: 20131120
  Receipt Date: 20131127
  Transmission Date: 20140711
  Serious: Yes (Other)
  Sender: FDA-Public Use
  Company Number: PHHY2013VE131038

PATIENT
  Age: 91 Year
  Sex: Female

DRUGS (3)
  1. ACLASTA [Suspect]
     Indication: OSTEOPOROSIS
     Dosage: UNK UKN, UNK
     Route: 042
     Dates: start: 20100813
  2. ACLASTA [Suspect]
     Dosage: UNK UKN, UNK
     Route: 042
     Dates: start: 20110813
  3. ACLASTA [Suspect]
     Dosage: UNK UKN, UNK
     Route: 042
     Dates: start: 20120813

REACTIONS (6)
  - Pneumonia [Recovered/Resolved]
  - Fibromyalgia [Not Recovered/Not Resolved]
  - Gait disturbance [Recovering/Resolving]
  - Mobility decreased [Recovering/Resolving]
  - Bone pain [Not Recovered/Not Resolved]
  - Osteoporosis [Unknown]
